FAERS Safety Report 7929632-0 (Version None)
Quarter: 2011Q4

REPORT INFORMATION
  Report Type: 
  Country: None (occurrence: None)
  Receive Date: 20111116
  Receipt Date: 20111116
  Transmission Date: 20120403
  Serious: Yes (Life-Threatening, Hospitalization)
  Sender: FDA-Public Use
  Company Number: 54973

PATIENT
  Age: 3 Month
  Sex: Female

DRUGS (1)
  1. HYLAND'S BABY TEETHING TABLETS [Suspect]
     Indication: TEETHING
     Dosage: 1 TABLET ON 10/13/11

REACTIONS (3)
  - HYPERHIDROSIS [None]
  - SUPRAVENTRICULAR TACHYCARDIA [None]
  - CONSTIPATION [None]
